FAERS Safety Report 9729493 (Version 1)
Quarter: 2013Q4

REPORT INFORMATION
  Report Type: Spontaneous
  Country: US (occurrence: US)
  Receive Date: 20131204
  Receipt Date: 20131204
  Transmission Date: 20140711
  Serious: No
  Sender: FDA-Public Use
  Company Number: US-GILEAD-2009-0022003

PATIENT
  Sex: Female
  Weight: 97.52 kg

DRUGS (15)
  1. LETAIRIS [Suspect]
     Indication: PULMONARY ARTERIAL HYPERTENSION
     Route: 048
     Dates: start: 20070922
  2. ATENOLOL [Concomitant]
  3. HYDROCHOROTHIAZIDE [Concomitant]
  4. ATACAND [Concomitant]
  5. AF-ASPIRIN [Concomitant]
  6. PRAVACHOL [Concomitant]
  7. SYNTHROID [Concomitant]
  8. CLARINEX [Concomitant]
  9. PATANOL [Concomitant]
  10. KLONOPIN [Concomitant]
  11. ADVIL [Concomitant]
  12. CENTRUM SILVER [Concomitant]
  13. VITAMIN B-12 [Concomitant]
  14. CALCIUM WITH D [Concomitant]
  15. FISH OIL [Concomitant]

REACTIONS (1)
  - Depression [Unknown]
